FAERS Safety Report 5703245-3 (Version None)
Quarter: 2008Q2

REPORT INFORMATION
  Report Type: 
  Country: None (occurrence: None)
  Receive Date: 20080411
  Receipt Date: 20080403
  Transmission Date: 20081010
  Serious: Yes (Hospitalization)
  Sender: FDA-Public Use
  Company Number: SE-ABBOTT-08P-150-0445224-00

PATIENT
  Age: 49 Year
  Sex: Male

DRUGS (1)
  1. ZEMPLAR [Suspect]
     Indication: DIABETIC NEPHROPATHY
     Route: 050
     Dates: start: 20080218

REACTIONS (3)
  - DIARRHOEA [None]
  - GROIN PAIN [None]
  - SKIN INFECTION [None]
